FAERS Safety Report 8286525-X (Version None)
Quarter: 2012Q2

REPORT INFORMATION
  Report Type: 
  Country: None (occurrence: None)
  Receive Date: 20120416
  Receipt Date: 20120409
  Transmission Date: 20120825
  Serious: Yes (Other)
  Sender: FDA-Public Use
  Company Number: US-PFIZER INC-2012089350

PATIENT
  Sex: Female
  Weight: 74.83 kg

DRUGS (5)
  1. LOSARTAN [Concomitant]
     Indication: HYPERTENSION
     Dosage: 100 MG, DAILY
  2. LEVOXYL [Concomitant]
     Indication: THYROIDECTOMY
     Dosage: 100 MCG, DAILY
  3. SIMVASTATIN [Concomitant]
     Indication: BLOOD CHOLESTEROL INCREASED
     Dosage: 20 MG, DAILY
  4. ACETYLSALICYLIC ACID [Concomitant]
     Indication: ANTIPLATELET THERAPY
     Dosage: 50 MG, DAILY
  5. XALATAN [Suspect]
     Indication: INTRAOCULAR PRESSURE INCREASED
     Dosage: 1 GTT, DAILY, BOTH EYES
     Route: 047
     Dates: end: 20110101

REACTIONS (1)
  - MALIGNANT MELANOMA [None]
